FAERS Safety Report 25679599 (Version 1)
Quarter: 2025Q3

REPORT INFORMATION
  Report Type: Spontaneous
  Country: IN (occurrence: IN)
  Receive Date: 20250814
  Receipt Date: 20250814
  Transmission Date: 20251021
  Serious: Yes (Other)
  Sender: VALIDUS
  Company Number: IN-VALIDUS PHARMACEUTICALS LLC-VLDS-RB-2025-00155

PATIENT
  Age: 9 Year
  Sex: Female

DRUGS (1)
  1. CARBAMAZEPINE [Suspect]
     Active Substance: CARBAMAZEPINE
     Indication: Product used for unknown indication
     Route: 048

REACTIONS (3)
  - Coma [Recovered/Resolved]
  - Suicidal behaviour [Unknown]
  - Toxicity to various agents [Unknown]
